FAERS Safety Report 19798208 (Version 2)
Quarter: 2023Q1

REPORT INFORMATION
  Report Type: Other
  Country: US (occurrence: None)
  Receive Date: 20210907
  Receipt Date: 20230306
  Transmission Date: 20230418
  Serious: No
  Sender: FDA-Public Use
  Company Number: US-ROCHE-2901615

PATIENT
  Age: 49 Year
  Sex: Female
  Weight: 70.370 kg

DRUGS (24)
  1. OCREVUS [Suspect]
     Active Substance: OCRELIZUMAB
     Indication: Relapsing-remitting multiple sclerosis
     Route: 065
     Dates: start: 20181207
  2. OCREVUS [Suspect]
     Active Substance: OCRELIZUMAB
     Dosage: 30MG/ML
     Route: 042
     Dates: start: 20191201
  3. VITAMIN D3 [Concomitant]
     Active Substance: CHOLECALCIFEROL
  4. VITAMIN B12 [Concomitant]
     Active Substance: CYANOCOBALAMIN
  5. BOTOX [Concomitant]
     Active Substance: ONABOTULINUMTOXINA
     Route: 030
  6. GABAPENTIN [Concomitant]
     Active Substance: GABAPENTIN
     Route: 048
  7. DEXTROSE [Concomitant]
     Active Substance: DEXTROSE
  8. HYDROXYZINE HYDROCHLORIDE [Concomitant]
     Active Substance: HYDROXYZINE HYDROCHLORIDE
     Route: 048
  9. LISINOPRIL [Concomitant]
     Active Substance: LISINOPRIL
  10. LOVASTATIN [Concomitant]
     Active Substance: LOVASTATIN
  11. OMEPRAZOLE [Concomitant]
     Active Substance: OMEPRAZOLE
  12. RANITIDINE [Concomitant]
     Active Substance: RANITIDINE
     Route: 048
  13. BACLOFEN [Concomitant]
     Active Substance: BACLOFEN
     Route: 048
  14. ARMODAFINIL [Concomitant]
     Active Substance: ARMODAFINIL
  15. MODAFINIL [Concomitant]
     Active Substance: MODAFINIL
  16. ADDERALL [Concomitant]
     Active Substance: AMPHETAMINE ASPARTATE\AMPHETAMINE SULFATE\DEXTROAMPHETAMINE SACCHARATE\DEXTROAMPHETAMINE SULFATE
  17. OXYCODONE [Concomitant]
     Active Substance: OXYCODONE
  18. DEXTROAMPHETAMINE [Concomitant]
     Active Substance: DEXTROAMPHETAMINE
  19. AMPHETAMINE [Concomitant]
     Active Substance: AMPHETAMINE
  20. FAMOTIDINE [Concomitant]
     Active Substance: FAMOTIDINE
  21. SOLIFENACIN [Concomitant]
     Active Substance: SOLIFENACIN
  22. ATORVASTATIN [Concomitant]
     Active Substance: ATORVASTATIN
  23. MECLIZINE [Concomitant]
     Active Substance: MECLIZINE HYDROCHLORIDE
  24. FLUTICASONE PROPIONATE [Concomitant]
     Active Substance: FLUTICASONE PROPIONATE

REACTIONS (1)
  - SARS-CoV-2 test positive [Recovered/Resolved]
